FAERS Safety Report 11890089 (Version 2)
Quarter: 2016Q1

REPORT INFORMATION
  Report Type: Spontaneous
  Country: US (occurrence: US)
  Receive Date: 20160105
  Receipt Date: 20160211
  Transmission Date: 20160526
  Serious: No
  Sender: FDA-Public Use
  Company Number: US-ASTRAZENECA-2015SF30720

PATIENT
  Age: 26477 Day
  Sex: Female

DRUGS (14)
  1. SYMBICORT [Suspect]
     Active Substance: BUDESONIDE\FORMOTEROL FUMARATE DIHYDRATE
     Indication: BRONCHIAL DISORDER
     Dosage: 160/4.5 UG TWO PUFFS TWO TIMES A DAY
     Route: 055
  2. CETIRIZINE HYDROCHLORIDE. [Concomitant]
     Active Substance: CETIRIZINE HYDROCHLORIDE
     Indication: PRODUCT USED FOR UNKNOWN INDICATION
     Route: 048
     Dates: start: 2013
  3. MAGNESIUM [Concomitant]
     Active Substance: MAGNESIUM
     Indication: PROPHYLAXIS
     Route: 048
     Dates: start: 2013
  4. AREDS 2 [Concomitant]
     Active Substance: MINERALS\VITAMINS
     Indication: VISUAL ACUITY REDUCED
     Dosage: 1 TO 2 TIMES A DAY
  5. ASPIRIN. [Concomitant]
     Active Substance: ASPIRIN
     Indication: CARDIAC DISORDER
     Dosage: DROPPED DOWN THE DOSE
  6. SIMVASTATIN. [Concomitant]
     Active Substance: SIMVASTATIN
     Indication: BLOOD CHOLESTEROL ABNORMAL
     Route: 048
     Dates: start: 2010
  7. ASPIRIN. [Concomitant]
     Active Substance: ASPIRIN
     Indication: CARDIAC DISORDER
  8. NITROSTATIN [Concomitant]
     Indication: CARDIAC DISORDER
  9. VITAMIN D PLUS [Concomitant]
     Indication: PROPHYLAXIS
     Route: 048
  10. METOPROLOL TARTRATE. [Suspect]
     Active Substance: METOPROLOL TARTRATE
     Indication: BLOOD PRESSURE INCREASED
     Route: 048
     Dates: start: 2011
  11. GABAPENTIN. [Concomitant]
     Active Substance: GABAPENTIN
     Indication: PAIN
     Dosage: THREE TIMES A DAY AND FOUR IF IT IS NEEDED
     Route: 048
     Dates: start: 2008
  12. PANTOPRAZOLE [Concomitant]
     Active Substance: PANTOPRAZOLE SODIUM
     Indication: PRODUCT USED FOR UNKNOWN INDICATION
     Route: 048
  13. ASPIRIN. [Concomitant]
     Active Substance: ASPIRIN
     Indication: ANTICOAGULANT THERAPY
  14. ASPIRIN. [Concomitant]
     Active Substance: ASPIRIN
     Indication: ANTICOAGULANT THERAPY
     Dosage: DROPPED DOWN THE DOSE

REACTIONS (10)
  - Device failure [Unknown]
  - Peripheral venous disease [Unknown]
  - Cardiovascular disorder [Unknown]
  - Intentional product misuse [Unknown]
  - Intervertebral disc disorder [Unknown]
  - Body height decreased [Unknown]
  - Bronchial disorder [Unknown]
  - Gastrooesophageal reflux disease [Unknown]
  - Device malfunction [Unknown]
  - Cardiac disorder [Unknown]

NARRATIVE: CASE EVENT DATE: 20151221
